FAERS Safety Report 25962870 (Version 1)
Quarter: 2025Q4

REPORT INFORMATION
  Report Type: Spontaneous
  Country: CA (occurrence: None)
  Receive Date: 20251026
  Receipt Date: 20251026
  Transmission Date: 20260117
  Serious: Yes (Other)
  Sender: FDA-CTU
  Company Number: None

PATIENT
  Age: 35 Year
  Sex: Female
  Weight: 58.5 kg

DRUGS (7)
  1. ORALAIR [Suspect]
     Active Substance: ANTHOXANTHUM ODORATUM POLLEN\DACTYLIS GLOMERATA POLLEN\LOLIUM PERENNE POLLEN\PHLEUM PRATENSE POLLEN\
     Indication: Seasonal allergy
     Dosage: OTHER STRENGTH : IR;?OTHER QUANTITY : 1 TABLET(S);?FREQUENCY : DAILY;?
     Route: 060
     Dates: start: 20241230, end: 20250501
  2. Ela-tevatriptan [Concomitant]
  3. OMEGA 3 [Concomitant]
     Active Substance: CAPSAICIN
  4. B12 [Concomitant]
  5. VITAMIN D NOS [Concomitant]
     Active Substance: CHOLECALCIFEROL\ERGOCALCIFEROL
  6. MAGNESIUM [Concomitant]
     Active Substance: MAGNESIUM
  7. Heme Iron [Concomitant]

REACTIONS (5)
  - Urticaria [None]
  - Food allergy [None]
  - Lip dry [None]
  - Chapped lips [None]
  - Lip exfoliation [None]

NARRATIVE: CASE EVENT DATE: 20250501
